FAERS Safety Report 19415524 (Version 1)
Quarter: 2021Q2

REPORT INFORMATION
  Report Type: Spontaneous
  Country: US (occurrence: US)
  Receive Date: 20210615
  Receipt Date: 20210615
  Transmission Date: 20210717
  Serious: Yes (Other)
  Sender: FDA-Public Use
  Company Number: US-AMGEN-USASP2021088185

PATIENT
  Age: 65 Year
  Sex: Female
  Weight: 55.34 kg

DRUGS (6)
  1. IBRANCE [Suspect]
     Active Substance: PALBOCICLIB
     Indication: METASTASES TO BONE
  2. FULVESTRANT. [Concomitant]
     Active Substance: FULVESTRANT
     Indication: BREAST CANCER
     Dosage: 500 MILLIGRAM, 2 INJECTIONS MONTHLY
     Route: 065
     Dates: start: 201907
  3. IBRANCE [Suspect]
     Active Substance: PALBOCICLIB
     Indication: BREAST CANCER
     Dosage: 75 MILLIGRAM, QD, 75MG TABLET. ONE TABLET DAILY BY MOUTH FOR 3 WEEKS AND OFF FOR ONE WEEK
     Route: 048
     Dates: start: 201907
  4. FULVESTRANT. [Concomitant]
     Active Substance: FULVESTRANT
     Indication: METASTASES TO BONE
  5. XGEVA [Suspect]
     Active Substance: DENOSUMAB
     Indication: METASTASES TO BONE
  6. XGEVA [Suspect]
     Active Substance: DENOSUMAB
     Indication: BREAST CANCER
     Dosage: 120 MILLIGRAM, QMO
     Route: 065
     Dates: start: 201907

REACTIONS (3)
  - Ligament disorder [Not Recovered/Not Resolved]
  - Weight increased [Not Recovered/Not Resolved]
  - Fall [Unknown]

NARRATIVE: CASE EVENT DATE: 202105
